FAERS Safety Report 14388958 (Version 2)
Quarter: 2019Q2

REPORT INFORMATION
  Report Type: Spontaneous
  Country: US (occurrence: US)
  Receive Date: 20180115
  Receipt Date: 20190509
  Transmission Date: 20190711
  Serious: Yes (Other)
  Sender: FDA-Public Use
  Company Number: US-SA-2017SA231043

PATIENT
  Age: 45 Year
  Sex: Female
  Weight: 86 kg

DRUGS (18)
  1. TAXOTERE [Suspect]
     Active Substance: DOCETAXEL
     Indication: INVASIVE DUCTAL BREAST CARCINOMA
     Dosage: 75 MG,Q3W
     Route: 042
     Dates: start: 20070105, end: 20070105
  2. EMEND [Concomitant]
     Active Substance: APREPITANT
     Dosage: UNK UNK, UNK
     Route: 065
  3. DECADRON [Concomitant]
     Active Substance: DEXAMETHASONE
     Dosage: UNK UNK, UNK
     Route: 065
  4. CYTOXAN [Concomitant]
     Active Substance: CYCLOPHOSPHAMIDE
     Dosage: UNK
  5. TRIAM-TIAZIDA R [Concomitant]
     Dosage: UNK UNK, UNK
     Route: 065
     Dates: start: 1999
  6. LOPRESSOR [Concomitant]
     Active Substance: METOPROLOL TARTRATE
     Dosage: UNK UNK, UNK
     Route: 065
  7. SEROQUEL [Concomitant]
     Active Substance: QUETIAPINE FUMARATE
     Dosage: UNK UNK, UNK
     Route: 065
     Dates: start: 2017
  8. TAXOTERE [Suspect]
     Active Substance: DOCETAXEL
     Dosage: 147 MG, Q3W
     Route: 042
     Dates: start: 20070419, end: 20070419
  9. DIOVAN [Concomitant]
     Active Substance: VALSARTAN
     Dosage: UNK UNK, UNK
     Route: 065
  10. ADRIAMYCIN [Concomitant]
     Active Substance: DOXORUBICIN HYDROCHLORIDE
  11. DOXYCYCLINE HYDROCHLORIDE [Concomitant]
     Active Substance: DOXYCYCLINE HYDROCHLORIDE
  12. NEOSAR [Concomitant]
     Active Substance: CYCLOPHOSPHAMIDE
     Dosage: UNK
  13. ALBUTEROL [SALBUTAMOL] [Concomitant]
     Active Substance: ALBUTEROL
     Dosage: UNK INHALER
     Route: 065
     Dates: start: 2006
  14. TRAMADOL. [Concomitant]
     Active Substance: TRAMADOL
     Dosage: UNK UNK, UNK
     Route: 065
     Dates: start: 2014
  15. WELLBUTRIN [Concomitant]
     Active Substance: BUPROPION HYDROCHLORIDE
     Dosage: UNK UNK, UNK
     Route: 065
     Dates: start: 2017
  16. MULTIVITAMINS [VITAMINS NOS] [Concomitant]
     Active Substance: VITAMINS
     Dosage: UNK UNK, UNK
     Route: 065
  17. COMPAZINE [Concomitant]
     Active Substance: PROCHLORPERAZINE MALEATE
     Dosage: UNK UNK, UNK
     Route: 065
  18. SYNTHROID [Concomitant]
     Active Substance: LEVOTHYROXINE SODIUM
     Dosage: UNK UNK, UNK
     Route: 065
     Dates: start: 1997

REACTIONS (5)
  - Anxiety [Unknown]
  - Emotional distress [Unknown]
  - Pain [Unknown]
  - Impaired quality of life [Unknown]
  - Alopecia [Recovering/Resolving]

NARRATIVE: CASE EVENT DATE: 2008
